FAERS Safety Report 6391862-X (Version None)
Quarter: 2009Q4

REPORT INFORMATION
  Report Type: 
  Country: None (occurrence: None)
  Receive Date: 20091007
  Receipt Date: 20090928
  Transmission Date: 20100525
  Serious: Yes (Other)
  Sender: FDA-Public Use
  Company Number: US-ELI_LILLY_AND_COMPANY-US200906002754

PATIENT
  Sex: Female

DRUGS (2)
  1. FORTEO [Suspect]
     Indication: OSTEOPOROSIS
     Dosage: UNK, UNK
     Dates: start: 20090601
  2. COUMADIN [Interacting]
     Indication: THROMBOSIS
     Dates: start: 20030101

REACTIONS (5)
  - DRUG LEVEL FLUCTUATING [None]
  - INHIBITORY DRUG INTERACTION [None]
  - MUSCLE TIGHTNESS [None]
  - THROMBOSIS [None]
  - VASCULAR RUPTURE [None]
